FAERS Safety Report 6338530-8 (Version None)
Quarter: 2009Q3

REPORT INFORMATION
  Report Type: 
  Country: None (occurrence: None)
  Receive Date: 20090901
  Receipt Date: 20090824
  Transmission Date: 20100115
  Serious: Yes (Other)
  Sender: FDA-Public Use
  Company Number: 2009SP019391

PATIENT
  Sex: Female

DRUGS (2)
  1. INTRON A [Suspect]
     Indication: HEPATITIS C
  2. INTERFERON [Suspect]
     Indication: HEPATITIS C

REACTIONS (4)
  - CONDITION AGGRAVATED [None]
  - HEPATIC FIBROSIS [None]
  - RETINOPATHY [None]
  - VISUAL FIELD DEFECT [None]
